FAERS Safety Report 8485816-7 (Version None)
Quarter: 2012Q3

REPORT INFORMATION
  Report Type: 
  Country: None (occurrence: None)
  Receive Date: 20120703
  Receipt Date: 20120624
  Transmission Date: 20120928
  Serious: Yes (Other)
  Sender: FDA-Public Use
  Company Number: PHHY2012BR056232

PATIENT
  Age: 58 Year
  Sex: Female
  Weight: 65 kg

DRUGS (4)
  1. ALLOPURINOL [Concomitant]
     Dosage: 1 DF, DAILY
  2. ALENDRONATE SODIUM [Suspect]
     Indication: OSTEOPENIA
     Dosage: 1 DF, QW
     Route: 048
  3. VITAMIN D [Concomitant]
  4. HYDREA [Concomitant]
     Indication: BLOOD DISORDER
     Dates: start: 19930101

REACTIONS (5)
  - GASTRITIS [None]
  - MICTURITION URGENCY [None]
  - NAUSEA [None]
  - BLOOD DISORDER [None]
  - ABDOMINAL DISCOMFORT [None]
